FAERS Safety Report 9170487 (Version 1)
Quarter: 2013Q1

REPORT INFORMATION
  Report Type: Spontaneous
  Country: US (occurrence: None)
  Receive Date: 20130307
  Receipt Date: 20130307
  Transmission Date: 20140127
  Serious: No
  Sender: FDA-Public Use
  Company Number: SPI01300141

PATIENT
  Sex: Female

DRUGS (1)
  1. AMITIZA [Suspect]

REACTIONS (1)
  - Chest pain [None]
